FAERS Safety Report 8611575-0 (Version None)
Quarter: 2012Q3

REPORT INFORMATION
  Report Type: 
  Country: None (occurrence: None)
  Receive Date: 20120822
  Receipt Date: 20120815
  Transmission Date: 20120928
  Serious: Yes (Other)
  Sender: FDA-Public Use
  Company Number: PHEH2012US016036

PATIENT
  Sex: Female
  Weight: 82.54 kg

DRUGS (1)
  1. GILENYA [Suspect]
     Indication: MULTIPLE SCLEROSIS
     Dosage: 0.5 MG, QD
     Route: 048

REACTIONS (5)
  - PAIN IN JAW [None]
  - DYSPHAGIA [None]
  - PHARYNGEAL OEDEMA [None]
  - EAR PAIN [None]
  - SWOLLEN TONGUE [None]
